FAERS Safety Report 4715165-1 (Version None)
Quarter: 2005Q3

REPORT INFORMATION
  Report Type: 
  Country: None (occurrence: None)
  Receive Date: 20050715
  Receipt Date: 20050712
  Transmission Date: 20060218
  Serious: Yes (Hospitalization)
  Sender: FDA-Public Use
  Company Number: FR-GLAXOSMITHKLINE-B0387381A

PATIENT

DRUGS (2)
  1. ZIDOVUDINE [Suspect]
     Indication: ANTIVIRAL PROPHYLAXIS
     Route: 048
  2. UNKNOWN ANTIRETROVIRAL TREATMENT [Concomitant]
     Indication: HIV INFECTION

REACTIONS (1)
  - HYPONATRAEMIA [None]
